FAERS Safety Report 5882720-5 (Version None)
Quarter: 2008Q3

REPORT INFORMATION
  Report Type: 
  Country: None (occurrence: None)
  Receive Date: 20080913
  Receipt Date: 20080812
  Transmission Date: 20090109
  Serious: No
  Sender: FDA-Public Use
  Company Number: US-ABBOTT-08P-163-0470666-00

PATIENT
  Sex: Female
  Weight: 59.02 kg

DRUGS (10)
  1. HUMIRA [Suspect]
     Indication: ANKYLOSING SPONDYLITIS
     Route: 058
     Dates: start: 20070301
  2. FOLIC ACID [Concomitant]
     Indication: VITAMIN SUPPLEMENTATION
     Dosage: DAILY DOSE
  3. FEXOFENADINE [Concomitant]
     Indication: HYPERSENSITIVITY
  4. RISEDRONATE SODIUM [Concomitant]
     Indication: OSTEOPENIA
  5. CALCIUM-SANDOZ [Concomitant]
     Indication: OSTEOPENIA
  6. LEVOTHYROXINE SODIUM [Concomitant]
     Indication: DRUG USE FOR UNKNOWN INDICATION
     Dates: start: 20050901
  7. MELOXICAM [Concomitant]
     Indication: ANKYLOSING SPONDYLITIS
     Dosage: 1/2 TO 1 TABLET, 1 IN 1 D
     Dates: start: 20051101
  8. ESOMEPRAZOLE SODIUM [Concomitant]
     Indication: STOMACH DISCOMFORT
  9. METAXALONE [Concomitant]
     Indication: ANKYLOSING SPONDYLITIS
     Dates: start: 20070601
  10. MOMETASONE FUROATE [Concomitant]
     Indication: HYPERSENSITIVITY
     Dosage: NASAL SPRAY

REACTIONS (2)
  - DRUG INEFFECTIVE [None]
  - SPINAL X-RAY ABNORMAL [None]
